FAERS Safety Report 23915015 (Version 1)
Quarter: 2024Q2

REPORT INFORMATION
  Report Type: Spontaneous
  Country: US (occurrence: None)
  Receive Date: 20240527
  Receipt Date: 20240527
  Transmission Date: 20240716
  Serious: No
  Sender: FDA-Public Use
  Company Number: None

PATIENT
  Age: 55 Year
  Sex: Male
  Weight: 92.25 kg

DRUGS (6)
  1. ZEPBOUND [Suspect]
     Active Substance: TIRZEPATIDE
     Indication: Obesity
     Dosage: OTHER QUANTITY : 1 INJECTION(S);?OTHER FREQUENCY : WEEKLY;?
     Route: 058
  2. INSULIN NOS [Concomitant]
     Active Substance: INSULIN NOS
  3. TRAVAIL [Concomitant]
  4. DORZOLAMIDE [Concomitant]
     Active Substance: DORZOLAMIDE
  5. UNSPECIFIED INGREDIENT [Concomitant]
     Active Substance: UNSPECIFIED INGREDIENT
  6. PROZAC [Concomitant]
     Active Substance: FLUOXETINE HYDROCHLORIDE

REACTIONS (6)
  - Abdominal distension [None]
  - Abdominal discomfort [None]
  - Nausea [None]
  - Eructation [None]
  - Blood glucose decreased [None]
  - Fatigue [None]

NARRATIVE: CASE EVENT DATE: 20240520
